FAERS Safety Report 5807793-7 (Version None)
Quarter: 2008Q3

REPORT INFORMATION
  Report Type: 
  Country: None (occurrence: None)
  Receive Date: 20080711
  Receipt Date: 20080702
  Transmission Date: 20090109
  Serious: Yes (Hospitalization, Other)
  Sender: FDA-Public Use
  Company Number: GB-ABBOTT-08P-167-0460621-00

PATIENT
  Sex: Male

DRUGS (1)
  1. KLACID I.V. [Suspect]
     Indication: DRUG USE FOR UNKNOWN INDICATION
     Dosage: 500MG/100ML
     Route: 042

REACTIONS (3)
  - ARM AMPUTATION [None]
  - DRUG ADMINISTRATION ERROR [None]
  - EXTRAVASATION [None]
